FAERS Safety Report 9490765 (Version 1)
Quarter: 2013Q3

REPORT INFORMATION
  Report Type: Spontaneous
  Country: DE (occurrence: None)
  Receive Date: 20130826
  Receipt Date: 20130826
  Transmission Date: 20140515
  Serious: Yes (Other)
  Sender: FDA-Public Use
  Company Number: GER/GER/13/0034090

PATIENT
  Age: 20 Year
  Sex: Female
  Weight: 59 kg

DRUGS (4)
  1. IBUBETA 400 AKUT (IBUPROFEN) [Suspect]
     Indication: PRODUCT USED FOR UNKNOWN INDICATION
     Dosage: 2800 MG, 1 IN 1 TOTAL, ORAL
     Route: 048
  2. PARACETAMOL [Suspect]
     Indication: PRODUCT USED FOR UNKNOWN INDICATION
     Dosage: 4 DOSAGE FORMS, 1 IN 1 TOTAL, ORAL
     Route: 048
  3. BROMOCRIPTINE [Suspect]
     Indication: PRODUCT USED FOR UNKNOWN INDICATION
     Dosage: 15 MG, 1 IN 1 TOTAL, ORAL
  4. MAGNESIUM [Suspect]
     Indication: PRODUCT USED FOR UNKNOWN INDICATION
     Dosage: 7 DOSAGE FORMS, 1 IN 1 TOTAL, ORAL

REACTIONS (4)
  - Drug abuse [None]
  - Headache [None]
  - Nausea [None]
  - Tachycardia [None]
